FAERS Safety Report 11383002 (Version 6)
Quarter: 2015Q4

REPORT INFORMATION
  Report Type: Spontaneous
  Country: US (occurrence: US)
  Receive Date: 20150814
  Receipt Date: 20151002
  Transmission Date: 20160304
  Serious: Yes (Hospitalization, Other)
  Sender: FDA-Public Use
  Company Number: US-PFIZER INC-2015267670

PATIENT
  Age: 56 Year
  Sex: Female
  Weight: 38 kg

DRUGS (1)
  1. LYRICA [Suspect]
     Active Substance: PREGABALIN
     Indication: FIBROMYALGIA
     Dosage: 200 MG, 3X/DAY
     Dates: start: 1999

REACTIONS (10)
  - Drug withdrawal syndrome [Unknown]
  - Dehydration [Unknown]
  - Fall [Unknown]
  - Malaise [Unknown]
  - Hypotension [Unknown]
  - Abasia [Unknown]
  - Activities of daily living impaired [Unknown]
  - Eating disorder [Unknown]
  - Insomnia [Unknown]
  - Weight decreased [Unknown]
